FAERS Safety Report 7398288-0 (Version None)
Quarter: 2011Q2

REPORT INFORMATION
  Report Type: 
  Country: None (occurrence: None)
  Receive Date: 20110406
  Receipt Date: 20110331
  Transmission Date: 20111010
  Serious: Yes (Other)
  Sender: FDA-Public Use
  Company Number: US-BAYER-2011-028889

PATIENT
  Sex: Male

DRUGS (8)
  1. MAGNEVIST [Suspect]
     Indication: ANGIOGRAM
     Dosage: UNK
     Dates: start: 20040916, end: 20040916
  2. MAGNEVIST [Suspect]
     Indication: NUCLEAR MAGNETIC RESONANCE IMAGING
     Dosage: UNK
     Dates: start: 20040911, end: 20040911
  3. MAGNEVIST [Suspect]
     Dosage: UNK
     Dates: start: 20040918, end: 20040918
  4. MAGNEVIST [Suspect]
     Dosage: UNK
     Dates: start: 20040917, end: 20040917
  5. OMNISCAN [Suspect]
     Indication: ANGIOGRAM
  6. MAGNEVIST [Suspect]
     Dosage: UNK
     Dates: start: 20050517, end: 20050517
  7. MAGNEVIST [Suspect]
     Dosage: UNK
     Dates: start: 20051005, end: 20051005
  8. OMNISCAN [Suspect]
     Indication: NUCLEAR MAGNETIC RESONANCE IMAGING
     Dosage: UNK
     Dates: start: 20050510, end: 20050510

REACTIONS (2)
  - NEPHROGENIC SYSTEMIC FIBROSIS [None]
  - PAIN [None]
